FAERS Safety Report 19449552 (Version 1)
Quarter: 2021Q2

REPORT INFORMATION
  Report Type: Spontaneous
  Country: US (occurrence: US)
  Receive Date: 20210622
  Receipt Date: 20210622
  Transmission Date: 20210717
  Serious: Yes (Death, Other)
  Sender: FDA-Public Use
  Company Number: US-HIKMA PHARMACEUTICALS USA INC.-US-H14001-21-02892

PATIENT
  Sex: Female

DRUGS (2)
  1. IRINOTECAN [Suspect]
     Active Substance: IRINOTECAN
     Indication: NEOPLASM
     Dosage: 30 MIN, ON DAY 1 AND 8 OF A 3?WEEK CYCLE
     Route: 042
  2. ALISERTIB [Concomitant]
     Active Substance: ALISERTIB
     Indication: NEOPLASM
     Dosage: ON DAYS 1?3 AND 8?10 OF A CYCLE, 240MG PER CYCLE
     Route: 048

REACTIONS (3)
  - Cardiac arrest [Fatal]
  - Nausea [Unknown]
  - Diarrhoea [Unknown]
